FAERS Safety Report 7883874-1 (Version None)
Quarter: 2011Q4

REPORT INFORMATION
  Report Type: 
  Country: None (occurrence: None)
  Receive Date: 20111102
  Receipt Date: 20111011
  Transmission Date: 20120403
  Serious: Yes (Hospitalization)
  Sender: FDA-Public Use
  Company Number: CA-JNJFOC-20111012758

PATIENT
  Sex: Female
  Weight: 74 kg

DRUGS (11)
  1. VENLAFAXINE [Concomitant]
     Dosage: ^ 1 1/2 CO HS^
  2. CALCIUM [Concomitant]
     Dosage: ^1 CO BID^
  3. VITAMIN D [Concomitant]
     Dosage: ^ 1 CO DIE^
  4. CLONAZEPAM [Concomitant]
     Dosage: AT NIGHT
  5. REMICADE [Suspect]
     Indication: RHEUMATOID ARTHRITIS
     Route: 042
     Dates: start: 20100817
  6. RISEDRONATE SODIUM [Concomitant]
     Dosage: ^ 1 CO/1X/SEM^
     Dates: start: 20101103
  7. REMICADE [Suspect]
     Indication: CROHN'S DISEASE
     Route: 042
     Dates: start: 20100817
  8. PREDNISONE [Concomitant]
     Dosage: ^ 2 CO DIE^
  9. ASACOL [Concomitant]
     Dosage: ^2 CO QID^
     Dates: start: 20100101
  10. PURINETHOL [Concomitant]
     Dosage: ^1 1/2 CO HS^
     Dates: start: 20101001
  11. CRESTOR [Concomitant]
     Dosage: ^ 1 CO HS^

REACTIONS (1)
  - APPENDICITIS [None]
